FAERS Safety Report 24247035 (Version 2)
Quarter: 2024Q4

REPORT INFORMATION
  Report Type: Report from Study
  Country: US (occurrence: US)
  Receive Date: 20240826
  Receipt Date: 20241126
  Transmission Date: 20250114
  Serious: Yes (Other)
  Sender: ACADIA PHARMACEUTICALS
  Company Number: US-ACADIA PHARMACEUTICALS INC.-ACA-2024-TRF-004152

PATIENT
  Sex: Female

DRUGS (2)
  1. DAYBUE [Suspect]
     Active Substance: TROFINETIDE
     Indication: Rett syndrome
     Dosage: 60 MILLILITER, BID
     Route: 048
     Dates: start: 202407
  2. DAYBUE [Suspect]
     Active Substance: TROFINETIDE
     Dosage: 30 MILLILITER, BID (HALF DOSE)
     Route: 048
     Dates: end: 202408

REACTIONS (7)
  - Suicidal ideation [Unknown]
  - Emotional distress [Unknown]
  - Depression [Unknown]
  - Crying [Unknown]
  - Prescribed underdose [Unknown]
  - Negative thoughts [Unknown]
  - Depression [Unknown]
